FAERS Safety Report 19669046 (Version 1)
Quarter: 2021Q3

REPORT INFORMATION
  Report Type: Report from Study
  Country: US (occurrence: US)
  Receive Date: 20210806
  Receipt Date: 20210806
  Transmission Date: 20211014
  Serious: No
  Sender: FDA-Public Use
  Company Number: US-SAREPTA THERAPEUTICS INC.-SRP2021-001523

PATIENT
  Age: 7 Year
  Sex: Male
  Weight: 22.68 kg

DRUGS (1)
  1. CASIMERSEN. [Suspect]
     Active Substance: CASIMERSEN
     Indication: DUCHENNE MUSCULAR DYSTROPHY
     Dosage: 700 MILLIGRAM, WEEKLY
     Route: 042
     Dates: start: 20210625, end: 20210625

REACTIONS (1)
  - Infusion related reaction [Recovered/Resolved]

NARRATIVE: CASE EVENT DATE: 20210625
